FAERS Safety Report 24025412 (Version 2)
Quarter: 2024Q3

REPORT INFORMATION
  Report Type: Spontaneous
  Country: PH (occurrence: PH)
  Receive Date: 20240628
  Receipt Date: 20240704
  Transmission Date: 20241017
  Serious: Yes (Death)
  Sender: STRIDES
  Company Number: PH-STRIDES ARCOLAB LIMITED-2024SP007486

PATIENT
  Age: 70 Year
  Sex: Male

DRUGS (5)
  1. METHOTREXATE [Suspect]
     Active Substance: METHOTREXATE
     Indication: Central nervous system lymphoma
     Dosage: 8 G/M2 EVERY 14 DAYS
     Route: 065
  2. METHOTREXATE [Suspect]
     Active Substance: METHOTREXATE
     Dosage: 8 G/M2 EVERY 14 DAYS
     Route: 065
  3. RITUXIMAB [Suspect]
     Active Substance: RITUXIMAB
     Indication: Central nervous system lymphoma
     Dosage: 375 MILLIGRAM/SQ. METER EVERY 14 DAYS
     Route: 065
  4. RITUXIMAB [Suspect]
     Active Substance: RITUXIMAB
     Dosage: 375 MILLIGRAM/SQ. METER EVERY14 DAYS FOR 6?MONTHS
     Route: 065
  5. TEMOZOLOMIDE [Suspect]
     Active Substance: TEMOZOLOMIDE
     Indication: Central nervous system lymphoma
     Dosage: 100 MILLIGRAM/SQ. METER (7 DAYS ON AND 7 DAYS OFF DURING AND AFTER RADIOTHERAPY)
     Route: 065

REACTIONS (3)
  - Death [Fatal]
  - Amnesia [Unknown]
  - Cognitive disorder [Unknown]
